FAERS Safety Report 6824382-6 (Version None)
Quarter: 2010Q3

REPORT INFORMATION
  Report Type: 
  Country: None (occurrence: None)
  Receive Date: 20100708
  Receipt Date: 20061025
  Transmission Date: 20110219
  Serious: No
  Sender: FDA-Public Use
  Company Number: US-PFIZER INC-2006132212

PATIENT
  Sex: Male
  Weight: 97.52 kg

DRUGS (13)
  1. CHANTIX [Suspect]
     Indication: SMOKING CESSATION THERAPY
     Dosage: 1 MG, 2X/DAY
     Route: 048
     Dates: start: 20070801, end: 20070901
  2. BENADRYL [Suspect]
     Indication: INSOMNIA
  3. COREG [Concomitant]
     Dosage: 25 MG/DAY
  4. ACTOS [Concomitant]
  5. LISINOPRIL [Concomitant]
     Dosage: 5 MG/DAY
  6. LIPITOR [Concomitant]
     Dosage: 80 MG/DAY
  7. WARFARIN SODIUM [Concomitant]
     Dosage: 7.5 MG/DAY
  8. METFORMIN HCL [Concomitant]
     Dosage: 1500 MG/DAY
  9. NIASPAN [Concomitant]
     Dosage: 1000 MG/DAY
  10. TRICOR [Concomitant]
     Dosage: 145 MG/DAY
  11. WELLBUTRIN [Concomitant]
     Dosage: 300 MG/DAY
  12. AMBIEN [Concomitant]
     Indication: INSOMNIA
  13. DIGITEK [Concomitant]
     Dosage: 0.25 MG/DAY

REACTIONS (6)
  - ABNORMAL DREAMS [None]
  - DRUG INEFFECTIVE [None]
  - FEELING ABNORMAL [None]
  - INSOMNIA [None]
  - SLEEP DISORDER [None]
  - TOBACCO USER [None]
